FAERS Safety Report 14017831 (Version 1)
Quarter: 2017Q3

REPORT INFORMATION
  Report Type: Spontaneous
  Country: US (occurrence: US)
  Receive Date: 20170927
  Receipt Date: 20170927
  Transmission Date: 20171128
  Serious: Yes (Other)
  Sender: FDA-Public Use
  Company Number: US-MYLANLABS-2017M1059888

PATIENT
  Age: 36 Year
  Sex: Female

DRUGS (1)
  1. METHIMAZOLE. [Suspect]
     Active Substance: METHIMAZOLE
     Indication: HYPERTHYROIDISM
     Dosage: 30 MG DAILY
     Route: 065

REACTIONS (6)
  - Pneumonia [Unknown]
  - Colitis [Unknown]
  - Agranulocytosis [Recovering/Resolving]
  - Sepsis [Unknown]
  - Leukopenia [Recovering/Resolving]
  - Candida infection [Unknown]
